FAERS Safety Report 8887457 (Version 3)
Quarter: 2012Q4

REPORT INFORMATION
  Report Type: 
  Country: US (occurrence: US)
  Receive Date: 20121105
  Receipt Date: 20121226
  Transmission Date: 20130627
  Serious: Yes (Other)
  Sender: FDA-Public Use
  Company Number: US-PFIZER INC-2012271683

PATIENT
  Age: 58 Year
  Sex: Male
  Weight: 104 kg

DRUGS (8)
  1. GLIPIZIDE [Suspect]
     Indication: BLOOD SUGAR ABNORMAL
     Dosage: 2.5 mg, 1x/day
     Route: 048
  2. GLUCOPHAGE [Concomitant]
     Indication: BLOOD SUGAR ABNORMAL
     Dosage: 1000 mg (two tablets of 500mg), 2x/day
  3. PROCARDIA XL [Concomitant]
     Indication: BLOOD PRESSURE ABNORMAL
     Dosage: 60 mg, daily
  4. LABETALOL [Concomitant]
     Indication: BLOOD PRESSURE ABNORMAL
     Dosage: 200 mg, 2x/day
  5. ACCUPRIL [Concomitant]
     Indication: BLOOD PRESSURE ABNORMAL
     Dosage: 40 mg, daily
  6. DYAZIDE [Concomitant]
     Indication: BLOOD PRESSURE ABNORMAL
     Dosage: 3.75/25, mg, daily
  7. ZETIA [Concomitant]
     Indication: BLOOD CHOLESTEROL ABNORMAL
     Dosage: 10 mg, daily
  8. LIPITOR [Concomitant]
     Indication: BLOOD CHOLESTEROL ABNORMAL
     Dosage: 20 mg, daily

REACTIONS (3)
  - Blood glucose fluctuation [Recovered/Resolved]
  - Medication residue [Unknown]
  - Product solubility abnormal [Unknown]
